FAERS Safety Report 5137279-7 (Version None)
Quarter: 2006Q4

REPORT INFORMATION
  Report Type: 
  Country: None (occurrence: None)
  Receive Date: 20061030
  Receipt Date: 20060210
  Transmission Date: 20070319
  Serious: Yes (Other)
  Sender: FDA-Public Use
  Company Number: US-AVENTIS-200611459US

PATIENT
  Sex: Female
  Weight: 52.7 kg

DRUGS (7)
  1. KETEK [Suspect]
     Indication: SINUSITIS
     Route: 048
  2. KETEK [Suspect]
     Route: 048
     Dates: start: 20051019, end: 20051024
  3. SINGULAIR [Concomitant]
  4. RHINOCORT [Concomitant]
     Dosage: DOSE: NASAL BILATERALLY
     Route: 045
  5. RYNATAN                                 /USA/ [Concomitant]
     Dosage: DOSE: 12 HOUR
  6. LEVAQUIN [Concomitant]
     Dosage: DOSE: 750/500
     Route: 048
     Dates: start: 20051013, end: 20051018
  7. ALBUTEROL [Concomitant]
     Dosage: DOSE: UNK

REACTIONS (12)
  - ABDOMINAL PAIN UPPER [None]
  - ALANINE AMINOTRANSFERASE INCREASED [None]
  - ASPARTATE AMINOTRANSFERASE INCREASED [None]
  - BLOOD TRIGLYCERIDES INCREASED [None]
  - EOSINOPHIL COUNT INCREASED [None]
  - GAMMA-GLUTAMYLTRANSFERASE INCREASED [None]
  - HAEMATOCRIT DECREASED [None]
  - HEPATITIS [None]
  - PULMONARY FUNCTION TEST DECREASED [None]
  - PYREXIA [None]
  - SINUSITIS [None]
  - SPLENOMEGALY [None]
